FAERS Safety Report 6598797-8 (Version None)
Quarter: 2010Q1

REPORT INFORMATION
  Report Type: 
  Country: None (occurrence: None)
  Receive Date: 20100216
  Receipt Date: 20100204
  Transmission Date: 20100710
  Serious: Yes (Hospitalization)
  Sender: FDA-Public Use
  Company Number: 2009-02787

PATIENT
  Age: 69 Year
  Sex: Male
  Weight: 78.1 kg

DRUGS (14)
  1. VELCADE [Suspect]
     Indication: MANTLE CELL LYMPHOMA
     Dosage: 3.2 MG, INTRAVENOUS
     Route: 042
     Dates: start: 20090603
  2. DOXORUBICIN HCL [Suspect]
     Dosage: 100 MG, INTRAVENOUS
     Route: 042
     Dates: start: 20090603
  3. VINCRISTINE [Suspect]
     Dosage: 2 MG, INTRAVENOUS
     Route: 042
     Dates: start: 20090603
  4. CYCLOPHOSPHAMIDE [Suspect]
     Dosage: 1500 MG, INTRAVENOUS
     Route: 042
     Dates: start: 20090603
  5. PREDNISONE [Suspect]
     Indication: MANTLE CELL LYMPHOMA
     Dosage: 100 MG, ORAL
     Route: 048
     Dates: start: 20090603
  6. CIPROFLOXACIN [Concomitant]
  7. DOMPERIDONE (DOMPERIDONE) [Concomitant]
  8. ONDANSETRON [Concomitant]
  9. FLUCONAZOLE [Concomitant]
  10. LACTULOSE [Concomitant]
  11. ALLOPURINOL [Concomitant]
  12. OMEPRAZOLE [Concomitant]
  13. TRANEXAMIC ACID (TRANEXAMIC ACID) [Concomitant]
  14. BECONASE [Concomitant]

REACTIONS (2)
  - CELLULITIS [None]
  - NEUTROPENIA [None]
